FAERS Safety Report 9287999 (Version 1)
Quarter: 2013Q2

REPORT INFORMATION
  Report Type: Spontaneous
  Country: US (occurrence: None)
  Receive Date: 20130513
  Receipt Date: 20130513
  Transmission Date: 20140414
  Serious: Yes (Hospitalization)
  Sender: FDA-Public Use
  Company Number: None

PATIENT
  Age: 83 Year
  Sex: Female
  Weight: 83.46 kg

DRUGS (7)
  1. ONGLYZA 5 MG BRISTOL-MYERS SQUIBB [Suspect]
     Indication: DIABETES MELLITUS
     Dosage: ONCE DAILY
     Route: 048
     Dates: start: 20110505, end: 20130401
  2. ATORVASTATIN 10 MG WATSON [Suspect]
     Dosage: ONCE DAILY
     Route: 048
     Dates: start: 2006
  3. LEVOTHYROXIN [Concomitant]
  4. VIT D [Concomitant]
  5. OMEPRAZOLE [Concomitant]
  6. METOPROLOL [Concomitant]
  7. METFORMIN [Concomitant]

REACTIONS (2)
  - Pancreatitis [None]
  - Hepatic enzyme increased [None]
